FAERS Safety Report 24539422 (Version 1)
Quarter: 2024Q4

REPORT INFORMATION
  Report Type: Spontaneous
  Country: US (occurrence: US)
  Receive Date: 20241023
  Receipt Date: 20241023
  Transmission Date: 20250115
  Serious: No
  Sender: ELI LILLY AND COMPANY
  Company Number: US-ELI_LILLY_AND_COMPANY-US202410015651

PATIENT
  Age: 65 Year
  Sex: Female

DRUGS (4)
  1. TRULICITY [Suspect]
     Active Substance: DULAGLUTIDE
     Indication: Type 2 diabetes mellitus
     Dosage: 0.75 MG, UNKNOWN
     Route: 058
  2. TRULICITY [Suspect]
     Active Substance: DULAGLUTIDE
     Indication: Type 2 diabetes mellitus
     Dosage: 0.75 MG, UNKNOWN
     Route: 058
  3. SIMPONI [Concomitant]
     Active Substance: GOLIMUMAB
     Indication: Arthritis
     Dosage: UNK
  4. HUMIRA [Concomitant]
     Active Substance: ADALIMUMAB
     Indication: Arthritis
     Dosage: UNK

REACTIONS (3)
  - Injection site pain [Unknown]
  - Injection site erythema [Unknown]
  - Injection site pruritus [Unknown]
